FAERS Safety Report 17944449 (Version 1)
Quarter: 2020Q2

REPORT INFORMATION
  Report Type: Spontaneous
  Country: JP (occurrence: JP)
  Receive Date: 20200625
  Receipt Date: 20200625
  Transmission Date: 20200714
  Serious: Yes (Other)
  Sender: FDA-Public Use
  Company Number: JP-GLAXOSMITHKLINE-JP2020105024

PATIENT
  Age: 70 Year
  Sex: Male

DRUGS (1)
  1. AVOLVE [Suspect]
     Active Substance: DUTASTERIDE
     Indication: BENIGN PROSTATIC HYPERPLASIA
     Dosage: 0.5 MG, QD
     Route: 048

REACTIONS (5)
  - Prostate cancer [Unknown]
  - Anal fissure [Unknown]
  - Prostatic specific antigen increased [Unknown]
  - Groin pain [Unknown]
  - Melaena [Unknown]

NARRATIVE: CASE EVENT DATE: 2020
